FAERS Safety Report 4551998-2 (Version None)
Quarter: 2004Q4

REPORT INFORMATION
  Report Type: 
  Country: None (occurrence: None)
  Receive Date: 20041217
  Receipt Date: 20040817
  Transmission Date: 20050328
  Serious: No
  Sender: FDA-Public Use
  Company Number: 2004-BP-06955BP

PATIENT
  Age: 66 Year
  Sex: Female

DRUGS (6)
  1. SPIRIVA [Suspect]
     Indication: CHRONIC OBSTRUCTIVE AIRWAYS DISEASE
     Dosage: 18 MCG (18 MCG), IH
     Route: 055
     Dates: start: 20040601
  2. ALBUTEROL [Concomitant]
  3. DETROL [Concomitant]
  4. SYNTHROID [Concomitant]
  5. VERAPAMIL [Concomitant]
  6. COMBIVENT [Concomitant]

REACTIONS (3)
  - DYSPNOEA [None]
  - HEADACHE [None]
  - VISION BLURRED [None]
